FAERS Safety Report 6240242-6 (Version None)
Quarter: 2009Q2

REPORT INFORMATION
  Report Type: 
  Country: None (occurrence: None)
  Receive Date: 20090623
  Receipt Date: 20080505
  Transmission Date: 20091009
  Serious: No
  Sender: FDA-Public Use
  Company Number: US-ASTRAZENECA-2008UW09176

PATIENT
  Age: 83 Year
  Sex: Female
  Weight: 43.1 kg

DRUGS (3)
  1. PULMICORT RESPULES [Suspect]
     Indication: CHRONIC OBSTRUCTIVE PULMONARY DISEASE
     Route: 055
     Dates: start: 20080401
  2. PERFORMIST [Concomitant]
  3. SPIRIVA [Concomitant]

REACTIONS (1)
  - CONTUSION [None]
